FAERS Safety Report 5729363-1 (Version None)
Quarter: 2008Q2

REPORT INFORMATION
  Report Type: 
  Country: None (occurrence: None)
  Receive Date: 20080501
  Receipt Date: 20080424
  Transmission Date: 20081010
  Serious: Yes (Other)
  Sender: FDA-Public Use
  Company Number: CERZ-1000186

PATIENT
  Age: 42 Year
  Sex: Female
  Weight: 65.8 kg

DRUGS (6)
  1. CEREZYME [Suspect]
     Indication: GAUCHER'S DISEASE
     Dosage: 4000 U, Q2W, INTRAVENOUS
     Route: 042
     Dates: start: 20070604, end: 20080416
  2. PROZAC [Concomitant]
  3. TENORMIN [Concomitant]
  4. VALTREX [Concomitant]
  5. BENADRYL [Concomitant]
  6. IBUPROFEN [Concomitant]

REACTIONS (9)
  - BLOOD PRESSURE INCREASED [None]
  - CHEST DISCOMFORT [None]
  - DRUG INEFFECTIVE [None]
  - FEELING ABNORMAL [None]
  - FLUSHING [None]
  - INFUSION RELATED REACTION [None]
  - MALAISE [None]
  - NAUSEA [None]
  - THROAT TIGHTNESS [None]
